FAERS Safety Report 17246406 (Version 3)
Quarter: 2020Q1

REPORT INFORMATION
  Report Type: Spontaneous
  Country: CH (occurrence: CH)
  Receive Date: 20200108
  Receipt Date: 20200122
  Transmission Date: 20200409
  Serious: Yes (Hospitalization, Other)
  Sender: FDA-Public Use
  Company Number: CH-AMERICAN REGENT INC-2020000043

PATIENT
  Age: 32 Year
  Sex: Female

DRUGS (2)
  1. FERINJECT [Suspect]
     Active Substance: FERRIC CARBOXYMALTOSE
     Dosage: UNK
     Route: 042
     Dates: start: 201907, end: 201907
  2. FERINJECT [Suspect]
     Active Substance: FERRIC CARBOXYMALTOSE
     Indication: IRON DEFICIENCY
     Dosage: UNK
     Dates: end: 2019

REACTIONS (9)
  - Narcolepsy [Unknown]
  - Androgenetic alopecia [Unknown]
  - Fibroblast growth factor 23 increased [Recovering/Resolving]
  - Hypocalciuria [Unknown]
  - Hypophosphataemia [Recovering/Resolving]
  - Vitamin D deficiency [Recovered/Resolved]
  - Osteomalacia [Recovering/Resolving]
  - Hypocalcaemia [Unknown]
  - Syncope [Unknown]

NARRATIVE: CASE EVENT DATE: 201906
